FAERS Safety Report 8697580 (Version 2)
Quarter: 2012Q4

REPORT INFORMATION
  Report Type: 
  Country: ES (occurrence: ES)
  Receive Date: 20120801
  Receipt Date: 20120925
  Transmission Date: 20130627
  Serious: Yes (Other)
  Sender: FDA-Public Use
  Company Number: PHHY2012ES064968

PATIENT
  Age: 49 Year
  Sex: Male

DRUGS (6)
  1. GABAPENTIN [Suspect]
     Indication: BACK PAIN
     Dosage: 600 mg, Q8H
  2. PAROXETINE [Concomitant]
  3. MIANSERIN [Concomitant]
  4. DISULFIRAM [Concomitant]
  5. EPROSARTAN [Concomitant]
  6. BISOPROLOL [Concomitant]

REACTIONS (16)
  - Encephalopathy [Recovering/Resolving]
  - Rhabdomyolysis [Unknown]
  - Renal failure acute [Recovering/Resolving]
  - Drug abuse [Unknown]
  - Confusional state [Recovering/Resolving]
  - Blood pressure decreased [Unknown]
  - General physical condition abnormal [Unknown]
  - Disorientation [Unknown]
  - Somnolence [Unknown]
  - Myoclonus [Unknown]
  - Tremor [Unknown]
  - Renal impairment [Recovering/Resolving]
  - Metabolic acidosis [Recovering/Resolving]
  - Hyperkalaemia [Recovering/Resolving]
  - Anuria [Recovering/Resolving]
  - Myalgia [Unknown]
